FAERS Safety Report 24601302 (Version 1)
Quarter: 2024Q4

REPORT INFORMATION
  Report Type: Spontaneous
  Country: US (occurrence: US)
  Receive Date: 20241111
  Receipt Date: 20241111
  Transmission Date: 20250114
  Serious: Yes (Other)
  Sender: NOVO NORDISK
  Company Number: US-NOVOPROD-1312669

PATIENT
  Age: 83 Year
  Sex: Female

DRUGS (2)
  1. WEGOVY [Suspect]
     Active Substance: SEMAGLUTIDE
     Indication: Hypertension
  2. WEGOVY [Suspect]
     Active Substance: SEMAGLUTIDE
     Indication: Weight decreased
     Dosage: 1.7 MG, QW
     Route: 058
     Dates: start: 20241021, end: 202410

REACTIONS (7)
  - Oxygen saturation decreased [Recovered/Resolved]
  - Retching [Recovered/Resolved]
  - Mood altered [Recovered/Resolved]
  - Feeding disorder [Not Recovered/Not Resolved]
  - Vision blurred [Recovered/Resolved]
  - Vomiting [Recovered/Resolved]
  - Off label use [Recovered/Resolved]

NARRATIVE: CASE EVENT DATE: 20241021
